FAERS Safety Report 21575054 (Version 1)
Quarter: 2022Q4

REPORT INFORMATION
  Report Type: Spontaneous
  Country: US (occurrence: US)
  Receive Date: 20221110
  Receipt Date: 20221110
  Transmission Date: 20230112
  Serious: Yes (Other)
  Sender: FDA-Public Use
  Company Number: US-SA-SAC20221107000565

PATIENT
  Sex: Female

DRUGS (1)
  1. DUPIXENT [Suspect]
     Active Substance: DUPILUMAB
     Indication: Dermatitis atopic
     Dosage: 300 MG, QOW
     Route: 058

REACTIONS (10)
  - Diabetes mellitus [Unknown]
  - Eye disorder [Unknown]
  - Eyelid exfoliation [Unknown]
  - Varicella [Unknown]
  - Pruritus [Unknown]
  - Skin exfoliation [Unknown]
  - Rash [Unknown]
  - Eczema [Unknown]
  - Dry eye [Unknown]
  - Rash pruritic [Unknown]
